FAERS Safety Report 22296680 (Version 2)
Quarter: 2023Q2

REPORT INFORMATION
  Report Type: Report from Study
  Country: CO (occurrence: CO)
  Receive Date: 20230508
  Receipt Date: 20230626
  Transmission Date: 20230721
  Serious: Yes (Hospitalization, Other)
  Sender: FDA-Public Use
  Company Number: CO-ABBVIE-4757883

PATIENT
  Sex: Female
  Weight: 41 kg

DRUGS (1)
  1. ZEMPLAR [Suspect]
     Active Substance: PARICALCITOL
     Indication: Hyperparathyroidism secondary
     Dosage: FORM STRENGTH: 2 MICROGRAM
     Route: 048
     Dates: start: 20181018, end: 20220910

REACTIONS (5)
  - Myocardial infarction [Unknown]
  - Inflammation [Not Recovered/Not Resolved]
  - Pulmonary oedema [Unknown]
  - Coronary artery occlusion [Unknown]
  - Haematochezia [Unknown]

NARRATIVE: CASE EVENT DATE: 20230101
